FAERS Safety Report 25899637 (Version 3)
Quarter: 2025Q4

REPORT INFORMATION
  Report Type: Report from Study
  Country: EG (occurrence: EG)
  Receive Date: 20251009
  Receipt Date: 20251117
  Transmission Date: 20260119
  Serious: Yes (Hospitalization)
  Sender: BIOGEN
  Company Number: EG-BIOGEN-2025BI01326381

PATIENT
  Age: 22 Year
  Sex: Female

DRUGS (3)
  1. TYSABRI [Suspect]
     Active Substance: NATALIZUMAB
     Indication: Multiple sclerosis
     Dates: start: 202411
  2. OMEGA-3 ACIDS [Concomitant]
     Active Substance: OMEGA-3 FATTY ACIDS
     Indication: Routine health maintenance
  3. VITAMIN D [Concomitant]
     Active Substance: VITAMIN D NOS
     Indication: Routine health maintenance

REACTIONS (3)
  - Multiple sclerosis relapse [Not Recovered/Not Resolved]
  - Insomnia [Not Recovered/Not Resolved]
  - Therapy non-responder [Unknown]
